FAERS Safety Report 6489508-5 (Version None)
Quarter: 2009Q4

REPORT INFORMATION
  Report Type: 
  Country: None (occurrence: None)
  Receive Date: 20091210
  Receipt Date: 20091003
  Transmission Date: 20100525
  Serious: No
  Sender: FDA-Public Use
  Company Number: US-AMGEN-KDL367548

PATIENT
  Sex: Female

DRUGS (2)
  1. ENBREL [Suspect]
     Indication: RHEUMATOID ARTHRITIS
     Route: 058
     Dates: start: 19990517, end: 20090923
  2. PREDNISONE [Concomitant]

REACTIONS (2)
  - TOOTH INFECTION [None]
  - UPPER RESPIRATORY TRACT INFECTION [None]
